FAERS Safety Report 7539157-2 (Version None)
Quarter: 2011Q2

REPORT INFORMATION
  Report Type: 
  Country: None (occurrence: None)
  Receive Date: 20110610
  Receipt Date: 20041124
  Transmission Date: 20111010
  Serious: Yes (Death, Other)
  Sender: FDA-Public Use
  Company Number: PHFR2004GB04246

PATIENT
  Sex: Male

DRUGS (1)
  1. CLOZARIL [Suspect]
     Indication: SCHIZOPHRENIA
     Dosage: UNK
     Route: 048
     Dates: start: 20020826

REACTIONS (4)
  - CORONARY ARTERY DISEASE [None]
  - ALCOHOL ABUSE [None]
  - MYOCARDIAL INFARCTION [None]
  - DRUG ABUSE [None]
